FAERS Safety Report 6840416-7 (Version None)
Quarter: 2010Q3

REPORT INFORMATION
  Report Type: 
  Country: None (occurrence: None)
  Receive Date: 20100714
  Receipt Date: 20100707
  Transmission Date: 20110219
  Serious: Yes (Other)
  Sender: FDA-Public Use
  Company Number: US-PFIZER INC-2010085081

PATIENT
  Sex: Male
  Weight: 70.7 kg

DRUGS (6)
  1. SUTENT [Suspect]
     Indication: LUNG NEOPLASM
     Dosage: 50 MG, 1X/DAY
     Route: 048
     Dates: start: 20100401
  2. LEVOXYL [Concomitant]
     Indication: PITUITARY TUMOUR BENIGN
     Dosage: 88 MG, 1X/DAY
     Route: 048
     Dates: start: 20090301
  3. PREDNISONE [Concomitant]
     Indication: PITUITARY TUMOUR BENIGN
     Dosage: 1 MG, 1X/DAY
     Dates: start: 20090301
  4. OMEPRAZOLE [Concomitant]
     Indication: GASTROINTESTINAL DISORDER
     Dosage: 20 MG, 1X/DAY
  5. CALCIUM [Concomitant]
     Dosage: UNK
  6. VYTORIN [Concomitant]
     Indication: BLOOD CHOLESTEROL INCREASED
     Dosage: 10/40 1XDAY
     Route: 048

REACTIONS (3)
  - DISORIENTATION [None]
  - FOOT DEFORMITY [None]
  - WOUND [None]
